FAERS Safety Report 26087463 (Version 1)
Quarter: 2025Q4

REPORT INFORMATION
  Report Type: Spontaneous
  Country: CA (occurrence: CA)
  Receive Date: 20251125
  Receipt Date: 20251125
  Transmission Date: 20260117
  Serious: Yes (Hospitalization, Other)
  Sender: PFIZER
  Company Number: CA-PFIZER INC-202500229708

PATIENT
  Age: 63 Year
  Sex: Male

DRUGS (2)
  1. CIBINQO [Suspect]
     Active Substance: ABROCITINIB
     Indication: Dermatitis atopic
     Dosage: 200 MG, 1X/DAY
     Route: 048
     Dates: start: 20230109
  2. METHOTREXATE [Concomitant]
     Active Substance: METHOTREXATE
     Dosage: 20 MG
     Dates: start: 202202

REACTIONS (1)
  - Cholecystectomy [Unknown]

NARRATIVE: CASE EVENT DATE: 20250920
